FAERS Safety Report 5341186-4 (Version None)
Quarter: 2007Q2

REPORT INFORMATION
  Report Type: 
  Country: None (occurrence: None)
  Receive Date: 20070530
  Receipt Date: 20070515
  Transmission Date: 20071010
  Serious: Yes (Hospitalization, Other)
  Sender: FDA-Public Use
  Company Number: 070507-0000484

PATIENT
  Age: 19 Year
  Sex: Male

DRUGS (4)
  1. DESOXYN [Suspect]
     Indication: DRUG USE FOR UNKNOWN INDICATION
  2. HEROIN [Concomitant]
  3. ADDERALL 10 [Concomitant]
  4. RITALIN [Concomitant]

REACTIONS (7)
  - ACUTE MYOCARDIAL INFARCTION [None]
  - ARTERIOSPASM CORONARY [None]
  - CARDIOGENIC SHOCK [None]
  - DRUG ABUSER [None]
  - LEFT VENTRICULAR DYSFUNCTION [None]
  - NO THERAPEUTIC RESPONSE [None]
  - REFUSAL OF TREATMENT BY PATIENT [None]
